FAERS Safety Report 6062135-X (Version None)
Quarter: 2009Q1

REPORT INFORMATION
  Report Type: 
  Country: None (occurrence: None)
  Receive Date: 20090130
  Receipt Date: 20090130
  Transmission Date: 20090719
  Serious: No
  Sender: FDA-Public Use
  Company Number: None

PATIENT
  Age: 60 Year
  Sex: Male
  Weight: 83.9154 kg

DRUGS (3)
  1. AVODART [Suspect]
     Indication: PROSTATOMEGALY
     Dosage: 1 PILL DAILY PO
     Route: 048
     Dates: start: 20081201, end: 20090129
  2. FLOWMAX [Concomitant]
  3. LIPROSIL [Concomitant]

REACTIONS (5)
  - ARTHRALGIA [None]
  - BACK PAIN [None]
  - EAR PAIN [None]
  - MYALGIA [None]
  - PAIN [None]
